FAERS Safety Report 8966901 (Version 1)
Quarter: 2012Q4

REPORT INFORMATION
  Report Type: 
  Country: US (occurrence: US)
  Receive Date: 20121214
  Receipt Date: 20121214
  Transmission Date: 20130627
  Serious: Yes (Life-Threatening, Hospitalization, Other)
  Sender: FDA-Public Use
  Company Number: US-ELI_LILLY_AND_COMPANY-US201201007791

PATIENT
  Age: 39 None
  Sex: Male

DRUGS (1)
  1. BYETTA [Suspect]
     Dosage: UNK
     Route: 058

REACTIONS (6)
  - Acute respiratory failure [Recovered/Resolved]
  - Pulmonary embolism [Recovering/Resolving]
  - Pancreatitis acute [Recovered/Resolved]
  - Renal failure [Unknown]
  - Pancreatitis relapsing [Recovered/Resolved]
  - Hypertriglyceridaemia [Unknown]
